FAERS Safety Report 18864105 (Version 1)
Quarter: 2021Q1

REPORT INFORMATION
  Report Type: Other
  Country: BG (occurrence: BG)
  Receive Date: 20210209
  Receipt Date: 20210209
  Transmission Date: 20210420
  Serious: Yes (Other)
  Sender: FDA-Public Use
  Company Number: BG-VISTA PHARMACEUTICALS INC.-2106520

PATIENT
  Age: 15 Year
  Sex: Male

DRUGS (2)
  1. SULFAMETHOXAZOLE AND TRIMETHOPRIM [Suspect]
     Active Substance: SULFAMETHOXAZOLE\TRIMETHOPRIM
     Indication: ACHROMOBACTER INFECTION
     Route: 065
  2. COLISTIN [Suspect]
     Active Substance: COLISTIN
     Route: 055

REACTIONS (1)
  - Pathogen resistance [Recovered/Resolved]
